FAERS Safety Report 16856588 (Version 1)
Quarter: 2019Q3

REPORT INFORMATION
  Report Type: Spontaneous
  Country: DE (occurrence: DE)
  Receive Date: 20190926
  Receipt Date: 20190926
  Transmission Date: 20191005
  Serious: Yes (Other)
  Sender: FDA-Public Use
  Company Number: DE-BAUSCH-BL-2019-026358

PATIENT
  Sex: Female

DRUGS (11)
  1. BENDAMUSTINE [Suspect]
     Active Substance: BENDAMUSTINE
     Indication: DIFFUSE LARGE B-CELL LYMPHOMA
     Dosage: 1ST LINE, R-CHOP 4 CYCLES
     Route: 065
     Dates: start: 201811, end: 201901
  2. RITUXAN [Suspect]
     Active Substance: RITUXIMAB
     Dosage: FURTHER LINE, R-ICE 1 CYCLE
     Route: 065
     Dates: start: 201905, end: 201905
  3. DEXAMETHASONE. [Suspect]
     Active Substance: DEXAMETHASONE
     Indication: DIFFUSE LARGE B-CELL LYMPHOMA
     Dosage: 1ST LINE, R-CHOP 4 CYCLES
     Route: 065
     Dates: start: 201811, end: 201901
  4. RITUXAN [Suspect]
     Active Substance: RITUXIMAB
     Dosage: 2ND LINE, LOCAL RADIOTHERAPY 40 GY
     Route: 065
     Dates: start: 201902, end: 201902
  5. RITUXAN [Suspect]
     Active Substance: RITUXIMAB
     Dosage: FURTHER LINE, R-DHAP 1 CYCLE
     Route: 065
     Dates: start: 201904, end: 201904
  6. CYCLOPHOSPHAMIDE. [Suspect]
     Active Substance: CYCLOPHOSPHAMIDE
     Indication: DIFFUSE LARGE B-CELL LYMPHOMA
     Dosage: 1ST LINE, R-CHOP 4 CYCLES
     Route: 065
     Dates: start: 201811, end: 201901
  7. METHOTREXATE. [Suspect]
     Active Substance: METHOTREXATE
     Indication: DIFFUSE LARGE B-CELL LYMPHOMA
     Dosage: 1ST LINE, R-CHOP 4 CYCLES
     Route: 065
     Dates: start: 201811, end: 201901
  8. THALIDOMIDE [Suspect]
     Active Substance: THALIDOMIDE
     Indication: DIFFUSE LARGE B-CELL LYMPHOMA
     Dosage: 1ST LINE, R-CHOP 4 CYCLES
     Route: 065
     Dates: start: 201811, end: 201901
  9. RITUXAN [Suspect]
     Active Substance: RITUXIMAB
     Indication: DIFFUSE LARGE B-CELL LYMPHOMA
     Dosage: 1ST LINE, R-CHOP 4 CYCLES
     Route: 065
     Dates: start: 201811, end: 201901
  10. AZATHIOPRINE. [Suspect]
     Active Substance: AZATHIOPRINE
     Indication: DIFFUSE LARGE B-CELL LYMPHOMA
     Dosage: 1ST LINE, R-CHOP 4 CYCLES
     Route: 065
     Dates: start: 201811, end: 201901
  11. POLIVY [Suspect]
     Active Substance: POLATUZUMAB VEDOTIN-PIIQ
     Indication: DIFFUSE LARGE B-CELL LYMPHOMA
     Dosage: 1ST LINE, R-CHOP 4 CYCLES
     Route: 065
     Dates: start: 201811, end: 201901

REACTIONS (2)
  - Haemoglobin decreased [Unknown]
  - Platelet count increased [Unknown]
